FAERS Safety Report 7623553-9 (Version None)
Quarter: 2011Q3

REPORT INFORMATION
  Report Type: 
  Country: None (occurrence: None)
  Receive Date: 20110720
  Receipt Date: 20110705
  Transmission Date: 20111222
  Serious: Yes (Hospitalization)
  Sender: FDA-Public Use
  Company Number: DE-SANOFI-AVENTIS-2011SA044166

PATIENT
  Age: 76 Year
  Sex: Male
  Weight: 88 kg

DRUGS (6)
  1. DRONEDARONE HCL [Suspect]
     Indication: ATRIAL FIBRILLATION
     Route: 048
     Dates: start: 20110411
  2. SIMVASTATIN [Concomitant]
  3. BISOPROLOL [Concomitant]
  4. TORSEMIDE [Concomitant]
  5. PHENPROCOUMON [Concomitant]
     Dosage: 9MG WEEKLY
  6. RAMIPRIL [Concomitant]

REACTIONS (1)
  - CARDIAC FAILURE [None]
